FAERS Safety Report 15094173 (Version 2)
Quarter: 2018Q3

REPORT INFORMATION
  Report Type: Report from Study
  Country: None (occurrence: CA)
  Receive Date: 20180630
  Receipt Date: 20180807
  Transmission Date: 20181010
  Serious: Yes (Other)
  Sender: FDA-Public Use
  Company Number: CA-ABBVIE-18S-028-2341465-00

PATIENT
  Age: 39 Year
  Sex: Female
  Weight: 94 kg

DRUGS (2)
  1. NORLUTATE [Concomitant]
     Active Substance: NORETHINDRONE ACETATE
     Indication: PRODUCT USED FOR UNKNOWN INDICATION
     Dates: start: 20180217, end: 20180430
  2. LUPRON DEPOT [Suspect]
     Active Substance: LEUPROLIDE ACETATE
     Indication: ENDOMETRIOSIS
     Route: 030
     Dates: start: 20150801

REACTIONS (14)
  - Vaginal haemorrhage [Recovered/Resolved]
  - Stress [Not Recovered/Not Resolved]
  - Fallopian tube obstruction [Unknown]
  - Muscle spasms [Not Recovered/Not Resolved]
  - Abdominal pain [Not Recovered/Not Resolved]
  - Haemorrhage [Recovering/Resolving]
  - Ovarian oedema [Recovering/Resolving]
  - Inappropriate schedule of drug administration [Unknown]
  - Pain [Recovering/Resolving]
  - Vaginal haemorrhage [Unknown]
  - Pelvic pain [Recovering/Resolving]
  - Hypertension [Not Recovered/Not Resolved]
  - Pyrexia [Recovering/Resolving]
  - Anxiety [Not Recovered/Not Resolved]

NARRATIVE: CASE EVENT DATE: 2018
